FAERS Safety Report 10861135 (Version 1)
Quarter: 2015Q1

REPORT INFORMATION
  Report Type: Spontaneous
  Country: US (occurrence: None)
  Receive Date: 20150218
  Receipt Date: 20150218
  Transmission Date: 20150721
  Serious: Yes (Hospitalization)
  Sender: FDA-Public Use
  Company Number: None

PATIENT
  Age: 25 Day
  Sex: Male
  Weight: 2.4 kg

DRUGS (1)
  1. NAFCILLIN [Suspect]
     Active Substance: NAFCILLIN\NAFCILLIN SODIUM
     Indication: STAPHYLOCOCCAL SEPSIS
     Route: 042
     Dates: start: 20141117, end: 20141214

REACTIONS (3)
  - Aspartate aminotransferase increased [None]
  - Jaundice cholestatic [None]
  - Transaminases increased [None]

NARRATIVE: CASE EVENT DATE: 20141126
